FAERS Safety Report 4609385-4 (Version None)
Quarter: 2005Q1

REPORT INFORMATION
  Report Type: 
  Country: None (occurrence: None)
  Receive Date: 20050314
  Receipt Date: 20050302
  Transmission Date: 20050727
  Serious: Yes (Congenital Anomaly, Other)
  Sender: FDA-Public Use
  Company Number: 167-20785-05030077

PATIENT

DRUGS (1)
  1. THALIDOMIDE(THALIDOMIDE) [Suspect]

REACTIONS (4)
  - CORNEAL DISORDER [None]
  - CORNEAL OEDEMA [None]
  - DRUG TOXICITY [None]
  - ENDOTHELIN ABNORMAL [None]
